FAERS Safety Report 6356040-9 (Version None)
Quarter: 2009Q3

REPORT INFORMATION
  Report Type: 
  Country: None (occurrence: None)
  Receive Date: 20090915
  Receipt Date: 20090902
  Transmission Date: 20100115
  Serious: Yes (Other)
  Sender: FDA-Public Use
  Company Number: RU-SOLVAY-00209004874

PATIENT
  Age: 46 Year
  Sex: Male

DRUGS (1)
  1. PRESTARIUM 2MG [Suspect]
     Indication: DRUG USE FOR UNKNOWN INDICATION
     Dosage: DAILY DOSE: 2 MILLIGRAM(S)
     Route: 048
     Dates: start: 19970101, end: 19970101

REACTIONS (2)
  - THROMBOCYTOPENIC PURPURA [None]
  - VASCULITIS [None]
